FAERS Safety Report 9096949 (Version 1)
Quarter: 2013Q1

REPORT INFORMATION
  Report Type: Spontaneous
  Country: US (occurrence: None)
  Receive Date: 20130125
  Receipt Date: 20130125
  Transmission Date: 20140127
  Serious: Yes (Hospitalization, Other)
  Sender: FDA-Public Use
  Company Number: 144150

PATIENT
  Age: 39 Year
  Sex: Female

DRUGS (1)
  1. DAUNORUBICIN HCL [Suspect]
     Indication: ACUTE MYELOID LEUKAEMIA
     Route: 042
     Dates: start: 20121013

REACTIONS (8)
  - Pleural effusion [None]
  - Cardiac failure [None]
  - Lung infection [None]
  - Ejection fraction decreased [None]
  - Blood bilirubin increased [None]
  - Unresponsive to stimuli [None]
  - Pneumonia [None]
  - Cardiomegaly [None]
